FAERS Safety Report 12629608 (Version 7)
Quarter: 2017Q1

REPORT INFORMATION
  Report Type: Spontaneous
  Country: US (occurrence: US)
  Receive Date: 20160808
  Receipt Date: 20170110
  Transmission Date: 20170428
  Serious: Yes (Other)
  Sender: FDA-Public Use
  Company Number: US-PFIZER INC-2016369421

PATIENT
  Age: 67 Year
  Sex: Female
  Weight: 51 kg

DRUGS (4)
  1. IBRANCE [Suspect]
     Active Substance: PALBOCICLIB
     Dosage: 75 MG, CYCLIC (DAY 1 - DAY 21 EVERY 28 DAYS)
     Route: 048
  2. IBRANCE [Suspect]
     Active Substance: PALBOCICLIB
     Indication: BREAST CANCER METASTATIC
     Dosage: 100 MG, CYCLIC (DAY 1 - DAY 21 EVERY 28 DAYS)
     Route: 048
  3. IBRANCE [Suspect]
     Active Substance: PALBOCICLIB
     Dosage: 75 MG, CYCLIC (D1-D21 Q28D) [DAYS 1-21 Q28 DAYS]
     Route: 048
     Dates: start: 20160714
  4. IBRANCE [Suspect]
     Active Substance: PALBOCICLIB
     Dosage: 75 MG, CYCLIC (DAY 1 - DAY 21 EVERY 28 DAYS)
     Route: 048
     Dates: start: 20160714

REACTIONS (10)
  - Haemoglobin decreased [Unknown]
  - Rash [Unknown]
  - Alopecia [Unknown]
  - Vaginal discharge [Unknown]
  - Oedema peripheral [Unknown]
  - Tooth abscess [Unknown]
  - Stomatitis [Unknown]
  - Joint swelling [Unknown]
  - Peripheral swelling [Unknown]
  - Haematocrit decreased [Unknown]

NARRATIVE: CASE EVENT DATE: 201607
